FAERS Safety Report 8088070-3 (Version None)
Quarter: 2012Q1

REPORT INFORMATION
  Report Type: 
  Country: None (occurrence: None)
  Receive Date: 20120128
  Receipt Date: 20110528
  Transmission Date: 20120608
  Serious: No
  Sender: FDA-Public Use
  Company Number: US-ABBOTT-11P-163-0729210-00

PATIENT
  Age: 29 Year
  Sex: Male

DRUGS (5)
  1. FLUTICASONE PROPIONATE [Concomitant]
     Indication: SEASONAL ALLERGY
     Dosage: 2 SPRAYS EACH NARES DAILY
  2. HUMIRA [Suspect]
     Indication: COLITIS ULCERATIVE
     Dates: start: 20100101
  3. ASTEPRO [Concomitant]
     Indication: SEASONAL ALLERGY
     Dosage: 2 PUFF EACH NARES
     Route: 045
  4. LIADA [Concomitant]
     Indication: COLITIS ULCERATIVE
     Dosage: 1.2 GM-TWO PILLS DAILY
  5. CELEXA [Concomitant]
     Indication: ANXIETY
     Dosage: 20 MG DAILY

REACTIONS (2)
  - INJECTION SITE DISCOLOURATION [None]
  - INJECTION SITE HAEMORRHAGE [None]
